FAERS Safety Report 17408316 (Version 2)
Quarter: 2020Q1

REPORT INFORMATION
  Report Type: Spontaneous
  Country: JP (occurrence: JP)
  Receive Date: 20200212
  Receipt Date: 20200309
  Transmission Date: 20200409
  Serious: Yes (Death, Other)
  Sender: FDA-Public Use
  Company Number: NVSJ2020JP001542

PATIENT
  Age: 78 Year
  Sex: Female

DRUGS (7)
  1. PERGOLIDE [Concomitant]
     Active Substance: PERGOLIDE
     Dosage: 250 UG, BID
     Route: 065
  2. TALIPEXOLE HYDROCHLORIDE [Concomitant]
     Indication: PRODUCT USED FOR UNKNOWN INDICATION
     Dosage: 0.4 MG, QHS
     Route: 065
  3. MIANSERIN [Concomitant]
     Active Substance: MIANSERIN
     Indication: DELIRIUM
     Dosage: 10 MG
     Route: 065
  4. COMTAN [Suspect]
     Active Substance: ENTACAPONE
     Indication: PARKINSON^S DISEASE
  5. ZOPICLONE [Concomitant]
     Active Substance: ZOPICLONE
     Indication: DELIRIUM
     Dosage: 7.5 MG
     Route: 065
  6. COMTAN [Suspect]
     Active Substance: ENTACAPONE
     Indication: THERAPEUTIC RESPONSE SHORTENED
     Dosage: UNK
     Route: 048
  7. PERGOLIDE [Concomitant]
     Active Substance: PERGOLIDE
     Indication: PARKINSONIAN GAIT
     Dosage: 250 UG, TID
     Route: 065

REACTIONS (6)
  - Hallucination, visual [Unknown]
  - Listless [Unknown]
  - Dementia [Unknown]
  - Memory impairment [Unknown]
  - Somnolence [Unknown]
  - Choking [Fatal]
